FAERS Safety Report 6892973-2 (Version None)
Quarter: 2010Q3

REPORT INFORMATION
  Report Type: 
  Country: None (occurrence: None)
  Receive Date: 20100731
  Receipt Date: 20081205
  Transmission Date: 20110219
  Serious: No
  Sender: FDA-Public Use
  Company Number: US-PFIZER INC-2008086833

PATIENT
  Sex: Male
  Weight: 100 kg

DRUGS (1)
  1. CAVERJECT [Suspect]
     Route: 017
     Dates: start: 19970101

REACTIONS (1)
  - DRUG INEFFECTIVE [None]
